FAERS Safety Report 19043863 (Version 1)
Quarter: 2021Q1

REPORT INFORMATION
  Report Type: Spontaneous
  Country: US (occurrence: US)
  Receive Date: 20210323
  Receipt Date: 20210323
  Transmission Date: 20210420
  Serious: Yes (Death, Other)
  Sender: FDA-Public Use
  Company Number: US-SA-2021SA097876

PATIENT
  Age: 60 Year
  Sex: Male

DRUGS (1)
  1. ZANTAC [Suspect]
     Active Substance: RANITIDINE HYDROCHLORIDE
     Dosage: UNK, QW
     Dates: start: 201202, end: 202002

REACTIONS (2)
  - Prostate cancer stage I [Fatal]
  - Lung carcinoma cell type unspecified stage II [Fatal]

NARRATIVE: CASE EVENT DATE: 20170315
